FAERS Safety Report 8291715-6 (Version None)
Quarter: 2012Q2

REPORT INFORMATION
  Report Type: 
  Country: None (occurrence: None)
  Receive Date: 20120417
  Receipt Date: 20110526
  Transmission Date: 20120825
  Serious: Yes (Hospitalization, Other)
  Sender: FDA-Public Use
  Company Number: US-ASTRAZENECA-2011SE25840

PATIENT
  Age: 60 Year
  Sex: Female
  Weight: 69.4 kg

DRUGS (9)
  1. CALCIUM CARBONATE [Concomitant]
  2. NEXIUM [Suspect]
     Indication: GASTROOESOPHAGEAL REFLUX DISEASE
     Route: 048
     Dates: start: 20110304, end: 20110324
  3. PROAIR HFA [Concomitant]
     Dosage: 2 PFF INH PRN PER WHEEZING
  4. ASPIRIN [Concomitant]
     Route: 048
  5. SYNTHROID [Concomitant]
     Route: 048
  6. AMBIEN [Concomitant]
     Indication: INSOMNIA
     Dosage: 10 MG QHS PRN
     Route: 048
  7. NEXIUM [Suspect]
     Indication: BARRETT'S OESOPHAGUS
     Route: 048
     Dates: start: 20110304, end: 20110324
  8. SINGULAIR [Concomitant]
     Route: 048
  9. METFORMIN HCL [Concomitant]
     Route: 048

REACTIONS (1)
  - STEVENS-JOHNSON SYNDROME [None]
